FAERS Safety Report 8070080-3 (Version None)
Quarter: 2012Q1

REPORT INFORMATION
  Report Type: 
  Country: None (occurrence: None)
  Receive Date: 20120125
  Receipt Date: 20120119
  Transmission Date: 20120608
  Serious: Yes (Death, Other)
  Sender: FDA-Public Use
  Company Number: US-BAYER-201015435NA

PATIENT
  Age: 54 Year
  Sex: Female
  Weight: 41 kg

DRUGS (24)
  1. PREDNISONE [Concomitant]
     Indication: PRODUCT USED FOR UNKNOWN INDICATION
     Dosage: UNK
  2. PROTAMINE SULFATE [Concomitant]
     Dosage: UNK
     Route: 042
     Dates: start: 20041103
  3. TRASYLOL [Suspect]
     Indication: MEDIASTINOSCOPY
     Dosage: TEST DOSE 1ML
     Route: 042
     Dates: start: 20041103, end: 20041103
  4. TRASYLOL [Suspect]
     Indication: MITRAL VALVE REPLACEMENT
  5. ETOMIDATE [Concomitant]
     Indication: PRODUCT USED FOR UNKNOWN INDICATION
     Dosage: UNK
     Route: 042
     Dates: start: 20041103
  6. CAPTOPRIL [Concomitant]
     Indication: HYPERTENSION
     Dosage: UNK
     Dates: start: 19940101
  7. IBUPROFEN (ADVIL) [Concomitant]
     Indication: MIGRAINE
     Dosage: LONG-TERM, PRN
     Route: 048
  8. LOVASTATIN [Concomitant]
  9. EPINEPHRINE [Concomitant]
     Dosage: UNK
     Route: 042
     Dates: start: 20041103
  10. LOPRESSOR [Concomitant]
     Dosage: UNK
     Route: 042
     Dates: start: 20041103
  11. COUMADIN [Concomitant]
     Indication: PRODUCT USED FOR UNKNOWN INDICATION
  12. PLATELETS [Concomitant]
     Dosage: 6 PACKS
  13. MAGNESIUM SULFATE [Concomitant]
     Dosage: UNK
     Route: 042
     Dates: start: 20041103
  14. DOPAMINE HCL [Concomitant]
     Dosage: UNK
     Route: 042
     Dates: start: 20041103
  15. INSULIN [Concomitant]
     Dosage: PER PERFUSION
     Route: 042
     Dates: start: 20041103
  16. VASOPRESSIN [Concomitant]
     Dosage: UNK
     Route: 042
     Dates: start: 20041103
  17. HEPARIN [Concomitant]
     Dosage: PER PERFUSION
     Route: 042
     Dates: start: 20041103
  18. LIDOCAINE [Concomitant]
     Indication: PRODUCT USED FOR UNKNOWN INDICATION
     Dosage: UNK
     Route: 042
     Dates: start: 20041103
  19. NITROGLYCERIN [Concomitant]
     Indication: PRODUCT USED FOR UNKNOWN INDICATION
     Dosage: UNK
     Dates: start: 19940101
  20. TRASYLOL [Suspect]
     Indication: CORONARY ARTERY BYPASS
     Dosage: LOADING DOSE: 400CC X 2 FOLLOWED BY 50CC/HR
     Route: 042
     Dates: start: 20041103
  21. FENTANYL [Concomitant]
     Indication: PRODUCT USED FOR UNKNOWN INDICATION
     Dosage: UNK
     Route: 042
     Dates: start: 20041103
  22. RED BLOOD CELLS [Concomitant]
  23. ZEMURON [Concomitant]
     Indication: PRODUCT USED FOR UNKNOWN INDICATION
     Dosage: UNK
  24. EXCEDRIN [CAFFEINE,PARACETAMOL] [Concomitant]
     Indication: MIGRAINE
     Dosage: LONG-TERM, PRN
     Route: 048

REACTIONS (5)
  - DEATH [None]
  - RENAL FAILURE ACUTE [None]
  - INJURY [None]
  - PAIN [None]
  - RENAL FAILURE [None]
